FAERS Safety Report 16812181 (Version 1)
Quarter: 2019Q3

REPORT INFORMATION
  Report Type: Spontaneous
  Country: DE (occurrence: DE)
  Receive Date: 20190916
  Receipt Date: 20190916
  Transmission Date: 20191005
  Serious: Yes (Disabling)
  Sender: FDA-Public Use
  Company Number: DE-BAYER-2019-165187

PATIENT

DRUGS (4)
  1. GADOVIST [Suspect]
     Active Substance: GADOBUTROL
     Indication: ARTHRALGIA
     Dosage: 7.5 ML, ONCE
     Route: 042
     Dates: start: 2018
  2. GADOVIST [Suspect]
     Active Substance: GADOBUTROL
     Indication: PAIN IN EXTREMITY
     Dosage: 7.5 ML, ONCE
     Route: 042
     Dates: start: 2018
  3. GADOVIST [Suspect]
     Active Substance: GADOBUTROL
     Indication: SPINAL PAIN
  4. GADOVIST [Suspect]
     Active Substance: GADOBUTROL
     Indication: NUCLEAR MAGNETIC RESONANCE IMAGING
     Dosage: 7.5 ML, ONCE
     Route: 042
     Dates: start: 2018

REACTIONS (6)
  - Nontherapeutic agent blood positive [None]
  - Pain in extremity [Not Recovered/Not Resolved]
  - Nontherapeutic agent urine positive [None]
  - Myalgia [Not Recovered/Not Resolved]
  - Spinal pain [None]
  - Back pain [Not Recovered/Not Resolved]

NARRATIVE: CASE EVENT DATE: 2018
